FAERS Safety Report 8270246-3 (Version None)
Quarter: 2012Q2

REPORT INFORMATION
  Report Type: 
  Country: None (occurrence: None)
  Receive Date: 20120410
  Receipt Date: 20120405
  Transmission Date: 20120825
  Serious: Yes (Hospitalization, Other)
  Sender: FDA-Public Use
  Company Number: US-RB-038711-12

PATIENT
  Age: 48 Year
  Sex: Female

DRUGS (3)
  1. KLONOPIN [Concomitant]
     Indication: PRODUCT USED FOR UNKNOWN INDICATION
     Dosage: DOSING DETAILS UNKNOWN
     Route: 065
  2. SUBOXONE [Suspect]
     Indication: PRODUCT USED FOR UNKNOWN INDICATION
     Dosage: DOSING DETAILS UNKNOWN
     Route: 065
     Dates: start: 20120101
  3. SUBOXONE [Suspect]
     Indication: PRODUCT USED FOR UNKNOWN INDICATION
     Dosage: DOSING DETAILS UNKNOWN
     Route: 065
     Dates: end: 20120101

REACTIONS (14)
  - VOMITING [None]
  - PYREXIA [None]
  - CHRONIC OBSTRUCTIVE PULMONARY DISEASE [None]
  - AGORAPHOBIA [None]
  - PRURITUS [None]
  - ANXIETY [None]
  - SLEEP DISORDER [None]
  - DERMATILLOMANIA [None]
  - CONDITION AGGRAVATED [None]
  - DYSPNOEA [None]
  - FEELING HOT [None]
  - THERAPEUTIC RESPONSE UNEXPECTED [None]
  - INTENTIONAL SELF-INJURY [None]
  - HAEMATEMESIS [None]
